FAERS Safety Report 11200439 (Version 2)
Quarter: 2015Q3

REPORT INFORMATION
  Report Type: Spontaneous
  Country: US (occurrence: US)
  Receive Date: 20150618
  Receipt Date: 20150731
  Transmission Date: 20151125
  Serious: Yes (Other)
  Sender: FDA-Public Use
  Company Number: US-JNJFOC-20150612740

PATIENT
  Age: 73 Year
  Sex: Male

DRUGS (7)
  1. CENTRUM SILVER [Concomitant]
     Active Substance: VITAMINS
  2. FLOMAX [Concomitant]
     Active Substance: TAMSULOSIN HYDROCHLORIDE
  3. ASPIRIN. [Concomitant]
     Active Substance: ASPIRIN
  4. IMBRUVICA [Suspect]
     Active Substance: IBRUTINIB
     Indication: CHRONIC LYMPHOCYTIC LEUKAEMIA
     Route: 048
     Dates: start: 20140605, end: 2015
  5. CIALIS [Concomitant]
     Active Substance: TADALAFIL
  6. MYRBETRIQ [Concomitant]
     Active Substance: MIRABEGRON
  7. GLUCOSAMINE CHONDROITIN SULFATE [Concomitant]

REACTIONS (3)
  - Incorrect dose administered [Recovered/Resolved]
  - Post procedural haemorrhage [Recovered/Resolved]
  - Prostatic mass [Unknown]

NARRATIVE: CASE EVENT DATE: 201506
